FAERS Safety Report 11838248 (Version 1)
Quarter: 2015Q4

REPORT INFORMATION
  Report Type: Spontaneous
  Country: FR (occurrence: FR)
  Receive Date: 20151215
  Receipt Date: 20151215
  Transmission Date: 20160305
  Serious: Yes (Hospitalization)
  Sender: FDA-Public Use
  Company Number: FR-SA-2015SA209956

PATIENT
  Age: 13 Year
  Sex: Female

DRUGS (6)
  1. SERESTA [Suspect]
     Active Substance: OXAZEPAM
     Dosage: 50 MGX20 TABLETS
     Route: 048
     Dates: start: 20151102, end: 20151102
  2. TEGRETOL [Suspect]
     Active Substance: CARBAMAZEPINE
     Route: 048
     Dates: start: 20151102, end: 20151102
  3. TERALITHE [Suspect]
     Active Substance: LITHIUM CARBONATE
     Dosage: 400MG X30 TABLETS (THAT IS 12G),
     Route: 048
     Dates: start: 20151102, end: 20151102
  4. ZOLPIDEM [Suspect]
     Active Substance: ZOLPIDEM\ZOLPIDEM TARTRATE
     Dosage: ZOLPIDEM TARTRATE 10 MG X 14 TABLETS
     Route: 048
     Dates: start: 20151102, end: 20151102
  5. EFFEXOR [Suspect]
     Active Substance: VENLAFAXINE HYDROCHLORIDE
     Route: 048
     Dates: start: 20151102, end: 20151102
  6. LARGACTIL [Suspect]
     Active Substance: CHLORPROMAZINE
     Dosage: 25 MGX35 TABLETS
     Route: 048
     Dates: start: 20151102, end: 20151102

REACTIONS (6)
  - Mydriasis [Recovered/Resolved]
  - Tachycardia [Recovered/Resolved]
  - Serotonin syndrome [Recovered/Resolved]
  - Intentional overdose [Recovered/Resolved]
  - Coma [Recovered/Resolved]
  - Hyperreflexia [Recovered/Resolved]

NARRATIVE: CASE EVENT DATE: 20151102
